FAERS Safety Report 25095890 (Version 1)
Quarter: 2025Q1

REPORT INFORMATION
  Report Type: Spontaneous
  Country: FR (occurrence: FR)
  Receive Date: 20250319
  Receipt Date: 20250319
  Transmission Date: 20250408
  Serious: Yes (Death)
  Sender: RECKITT BENCKISER
  Company Number: None

PATIENT

DRUGS (1)
  1. BUPRENORPHINE [Suspect]
     Active Substance: BUPRENORPHINE
     Indication: Product used for unknown indication
     Route: 065
     Dates: end: 20230719

REACTIONS (3)
  - Accident at work [Fatal]
  - Substance use disorder [Fatal]
  - Drug use disorder [Fatal]

NARRATIVE: CASE EVENT DATE: 20230719
